FAERS Safety Report 6018066-4 (Version None)
Quarter: 2008Q4

REPORT INFORMATION
  Report Type: 
  Country: None (occurrence: None)
  Receive Date: 20081223
  Receipt Date: 20081215
  Transmission Date: 20090506
  Serious: Yes (Death, Hospitalization)
  Sender: FDA-Public Use
  Company Number: FR-PFIZER INC-2008155613

PATIENT

DRUGS (2)
  1. AMLOD [Suspect]
     Route: 048
     Dates: end: 20080501
  2. IRBESARTAN [Concomitant]
     Dosage: UNK
     Dates: start: 20080101, end: 20080101

REACTIONS (2)
  - COLONIC PSEUDO-OBSTRUCTION [None]
  - SEPSIS [None]
